FAERS Safety Report 9404187 (Version 2)
Quarter: 2013Q4

REPORT INFORMATION
  Report Type: Report from Study
  Country: JP (occurrence: JP)
  Receive Date: 20130717
  Receipt Date: 20131107
  Transmission Date: 20140711
  Serious: Yes (Other)
  Sender: FDA-Public Use
  Company Number: JP-JNJFOC-20130707947

PATIENT
  Age: 52 Year
  Sex: Female

DRUGS (14)
  1. STELARA [Suspect]
     Indication: PSORIATIC ARTHROPATHY
     Route: 058
     Dates: start: 20120731, end: 20120731
  2. STELARA [Suspect]
     Indication: PSORIATIC ARTHROPATHY
     Route: 058
     Dates: start: 20120830, end: 20120830
  3. STELARA [Suspect]
     Indication: PSORIATIC ARTHROPATHY
     Route: 058
     Dates: start: 20121122, end: 20121122
  4. STELARA [Suspect]
     Indication: PSORIATIC ARTHROPATHY
     Route: 058
     Dates: start: 20130214, end: 20130214
  5. STELARA [Suspect]
     Indication: PSORIATIC ARTHROPATHY
     Route: 058
     Dates: start: 20130509, end: 20130509
  6. STELARA [Suspect]
     Indication: PSORIATIC ARTHROPATHY
     Route: 058
     Dates: start: 20130808, end: 20130808
  7. FULMETA [Suspect]
     Indication: PSORIATIC ARTHROPATHY
     Route: 061
  8. MUCOSTA [Concomitant]
     Indication: PROPHYLAXIS
     Route: 048
  9. LOXONIN [Concomitant]
     Indication: PSORIATIC ARTHROPATHY
     Route: 048
  10. ANTEBATE [Concomitant]
     Indication: PSORIATIC ARTHROPATHY
     Route: 061
  11. DOVONEX [Concomitant]
     Indication: PSORIATIC ARTHROPATHY
     Route: 061
  12. PETROLATUM SALICYLATE [Concomitant]
     Indication: PSORIATIC ARTHROPATHY
     Route: 061
  13. METHOTREXATE [Concomitant]
     Indication: PSORIATIC ARTHROPATHY
     Route: 048
     Dates: start: 20130418, end: 20130717
  14. METHOTREXATE [Concomitant]
     Indication: PSORIATIC ARTHROPATHY
     Route: 048
     Dates: start: 20130718

REACTIONS (2)
  - Cellulitis [Recovering/Resolving]
  - Off label use [Unknown]
